FAERS Safety Report 15493155 (Version 1)
Quarter: 2018Q4

REPORT INFORMATION
  Report Type: Spontaneous
  Country: US (occurrence: US)
  Receive Date: 20181012
  Receipt Date: 20181012
  Transmission Date: 20190205
  Serious: Yes (Death, Other)
  Sender: FDA-Public Use
  Company Number: US-LANNETT COMPANY, INC.-US-2018LAN001208

PATIENT
  Age: 66 Year
  Sex: Male

DRUGS (1)
  1. METAXALONE. [Suspect]
     Active Substance: METAXALONE
     Indication: PRODUCT USED FOR UNKNOWN INDICATION
     Dosage: UNK
     Route: 065

REACTIONS (8)
  - Delirium [Unknown]
  - Coma [Unknown]
  - Acute kidney injury [Unknown]
  - Depressed level of consciousness [Unknown]
  - Hypotension [Unknown]
  - Tremor [Unknown]
  - Toxicity to various agents [Fatal]
  - Hyperreflexia [Unknown]
